FAERS Safety Report 15705675 (Version 1)
Quarter: 2018Q4

REPORT INFORMATION
  Report Type: Spontaneous
  Country: US (occurrence: US)
  Receive Date: 20181210
  Receipt Date: 20181210
  Transmission Date: 20190205
  Serious: Yes (Disabling, Other)
  Sender: FDA-Public Use
  Company Number: US-OTSUKA-2018_016092

PATIENT
  Sex: Female

DRUGS (7)
  1. ALPRAZOLAM. [Concomitant]
     Active Substance: ALPRAZOLAM
     Indication: ANXIETY
     Dosage: UP TO 2 MG
     Route: 065
     Dates: start: 20160329
  2. LAMOTRIGINE. [Concomitant]
     Active Substance: LAMOTRIGINE
     Indication: PRODUCT USED FOR UNKNOWN INDICATION
     Dosage: 150 MG, UNK
     Route: 065
     Dates: start: 20180628
  3. ABILIFY [Suspect]
     Active Substance: ARIPIPRAZOLE
     Indication: MAJOR DEPRESSION
     Dosage: 2.5 MG, QD
     Route: 065
     Dates: start: 200811
  4. CYMBALTA [Concomitant]
     Active Substance: DULOXETINE HYDROCHLORIDE
     Indication: PRODUCT USED FOR UNKNOWN INDICATION
     Dosage: 60 MG, BID
     Route: 065
     Dates: start: 20160628
  5. ABILIFY [Suspect]
     Active Substance: ARIPIPRAZOLE
     Indication: ADJUVANT THERAPY
     Dosage: 5 MG, QD
     Route: 065
     Dates: end: 201604
  6. ARIPIPRAZOLE. [Concomitant]
     Active Substance: ARIPIPRAZOLE
     Indication: PRODUCT USED FOR UNKNOWN INDICATION
     Dosage: UNK
     Route: 065
     Dates: start: 20150616, end: 201604
  7. METHYLPHENIDATE. [Concomitant]
     Active Substance: METHYLPHENIDATE
     Indication: PRODUCT USED FOR UNKNOWN INDICATION
     Dosage: 20 MG, TID
     Route: 048
     Dates: start: 20160606

REACTIONS (22)
  - Suicidal ideation [Recovered/Resolved]
  - Bankruptcy [Unknown]
  - Oesophagitis [Unknown]
  - Gambling disorder [Recovered/Resolved]
  - Disability [Unknown]
  - Generalised anxiety disorder [Unknown]
  - Attention deficit/hyperactivity disorder [Unknown]
  - Condition aggravated [Recovering/Resolving]
  - Suicide attempt [Recovered/Resolved]
  - Obsessive-compulsive disorder [Recovered/Resolved]
  - Emotional distress [Unknown]
  - Eating disorder [Recovered/Resolved]
  - Bipolar II disorder [Unknown]
  - Compulsive shopping [Recovered/Resolved]
  - Economic problem [Unknown]
  - Injury [Unknown]
  - Compulsive sexual behaviour [Recovered/Resolved]
  - Compulsive hoarding [Recovered/Resolved]
  - Neuropsychiatric symptoms [Unknown]
  - Mental disorder [Unknown]
  - Gastrooesophageal reflux disease [Unknown]
  - Nicotine dependence [Unknown]

NARRATIVE: CASE EVENT DATE: 200811
